FAERS Safety Report 9322388 (Version 1)
Quarter: 2013Q2

REPORT INFORMATION
  Report Type: Spontaneous
  Country: US (occurrence: US)
  Receive Date: 20130531
  Receipt Date: 20130531
  Transmission Date: 20140414
  Serious: No
  Sender: FDA-Public Use
  Company Number: US-TARO-2013P1003006

PATIENT
  Age: 56 Year
  Sex: Female
  Weight: 72.58 kg

DRUGS (9)
  1. CLOTRIMAZOLE VAGINAL CREAM USP 2% 3 DAY [Suspect]
     Indication: VULVOVAGINAL MYCOTIC INFECTION
     Route: 067
     Dates: start: 20130304, end: 20130305
  2. LISINOPRIL [Concomitant]
  3. NORVASC [Concomitant]
  4. METFORMIN [Concomitant]
  5. SIMVASTATIN [Concomitant]
  6. ASPIRIN [Concomitant]
  7. CALCIUM [Concomitant]
  8. MULTIVITAMIN [Concomitant]
  9. PREDNISONE [Concomitant]
     Dates: start: 201303

REACTIONS (5)
  - Vulvovaginal pruritus [Recovered/Resolved]
  - Vulvovaginal burning sensation [Recovered/Resolved]
  - Vulvovaginal discomfort [Recovered/Resolved]
  - Insomnia [Recovered/Resolved]
  - Application site hypersensitivity [Recovered/Resolved]
